FAERS Safety Report 6506936-X (Version None)
Quarter: 2009Q4

REPORT INFORMATION
  Report Type: 
  Country: None (occurrence: None)
  Receive Date: 20091221
  Receipt Date: 20091210
  Transmission Date: 20100525
  Serious: Yes (Hospitalization)
  Sender: FDA-Public Use
  Company Number: US-BAYER-200941045NA

PATIENT
  Age: 23 Year
  Sex: Female
  Weight: 76 kg

DRUGS (1)
  1. MIRENA [Suspect]
     Indication: CONTRACEPTION
     Dosage: CONTINUOUS
     Route: 015
     Dates: start: 20090601, end: 20091203

REACTIONS (7)
  - BACTERIAL SEPSIS [None]
  - CHILLS [None]
  - HYPOTENSION [None]
  - LIVER DISORDER [None]
  - NERVOUSNESS [None]
  - PYREXIA [None]
  - URINARY TRACT INFECTION [None]
